FAERS Safety Report 6369409-3 (Version None)
Quarter: 2009Q3

REPORT INFORMATION
  Report Type: 
  Country: None (occurrence: None)
  Receive Date: 20090917
  Receipt Date: 20090910
  Transmission Date: 20100115
  Serious: Yes (Death, Hospitalization)
  Sender: FDA-Public Use
  Company Number: 2008AL010863

PATIENT
  Age: 58 Year
  Sex: Male

DRUGS (16)
  1. DIGOXIN [Suspect]
     Dosage: 0.125 MG, PO
     Route: 048
  2. COREG [Concomitant]
  3. POTASSIUM CHLORIDE [Concomitant]
  4. LASIX [Concomitant]
  5. CAPTOPRIL [Concomitant]
  6. SOCOR [Concomitant]
  7. GLYBURIDE [Concomitant]
  8. AVANDIA [Concomitant]
  9. COUMADIN [Concomitant]
  10. ACTOS [Concomitant]
  11. METFORMIN HCL [Concomitant]
  12. FUROSEMIDE [Concomitant]
  13. POTASSIUM CHLORIDE [Concomitant]
  14. PROAIR HFA [Concomitant]
  15. ZYRTEC [Concomitant]
  16. METOLAZONE [Concomitant]

REACTIONS (14)
  - ANXIETY [None]
  - ARRHYTHMIA [None]
  - ATRIOVENTRICULAR BLOCK FIRST DEGREE [None]
  - CARDIOMEGALY [None]
  - CONDUCTION DISORDER [None]
  - CONGESTIVE CARDIOMYOPATHY [None]
  - DIZZINESS [None]
  - DYSPNOEA [None]
  - ECONOMIC PROBLEM [None]
  - HEART VALVE INCOMPETENCE [None]
  - MULTIPLE INJURIES [None]
  - OEDEMA PERIPHERAL [None]
  - PAIN [None]
  - SYNCOPE [None]
